FAERS Safety Report 15712393 (Version 1)
Quarter: 2018Q4

REPORT INFORMATION
  Report Type: Spontaneous
  Country: US (occurrence: US)
  Receive Date: 20181205
  Receipt Date: 20181205
  Transmission Date: 20190205
  Serious: No
  Sender: FDA-Public Use
  Company Number: None

PATIENT

DRUGS (1)
  1. SIROLIMUS TAB 0.5MG [Suspect]
     Active Substance: SIROLIMUS

REACTIONS (3)
  - Blood pressure increased [None]
  - Weight increased [None]
  - Peripheral swelling [None]
